FAERS Safety Report 8115137-3 (Version None)
Quarter: 2012Q1

REPORT INFORMATION
  Report Type: 
  Country: None (occurrence: None)
  Receive Date: 20120206
  Receipt Date: 20120201
  Transmission Date: 20120608
  Serious: Yes (Death)
  Sender: FDA-Public Use
  Company Number: US-CELGENEUS-163-21880-11111436

PATIENT
  Sex: Male
  Weight: 59.02 kg

DRUGS (10)
  1. DEXAMETHASONE [Concomitant]
     Dosage: 2.5 TABLET
     Route: 065
  2. LOPERAMIDE HCL [Concomitant]
     Dosage: 2 MILLIGRAM
     Route: 048
  3. TAMSULOSIN HCL [Concomitant]
     Dosage: .4 MILLIGRAM
     Route: 048
  4. REVLIMID [Suspect]
     Indication: MULTIPLE MYELOMA
     Dosage: 25 MILLIGRAM
     Route: 048
     Dates: start: 20110922, end: 20111012
  5. ASPIRIN [Concomitant]
     Dosage: 81 MILLIGRAM
     Route: 048
  6. LOTREL [Concomitant]
     Dosage: 5MG - 20MG
     Route: 048
  7. METOPROLOL TARTRATE [Concomitant]
     Dosage: 50 MILLIGRAM
     Route: 048
  8. VIACIN [Concomitant]
     Dosage: 1500 MILLIGRAM
     Route: 048
  9. SENOKOT [Concomitant]
     Dosage: 8.6MG - 50MG
     Route: 048
  10. MULTI-VITAMIN [Concomitant]
     Dosage: 1 TABLET
     Route: 048

REACTIONS (2)
  - MULTIPLE MYELOMA [None]
  - DEATH [None]
